FAERS Safety Report 10928521 (Version 1)
Quarter: 2015Q1

REPORT INFORMATION
  Report Type: Spontaneous
  Country: US (occurrence: None)
  Receive Date: 20150318
  Receipt Date: 20150318
  Transmission Date: 20150721
  Serious: Yes (Other)
  Sender: FDA-Public Use
  Company Number: None

PATIENT
  Age: 73 Year
  Sex: Male
  Weight: 77.11 kg

DRUGS (10)
  1. HUMALOG KWIKPEN [Concomitant]
     Active Substance: INSULIN LISPRO
  2. LASIX [Concomitant]
     Active Substance: FUROSEMIDE
  3. 81 MG ASPIRIN [Concomitant]
  4. MULTIVITAMIN [Concomitant]
     Active Substance: VITAMINS
  5. NORCO [Suspect]
     Active Substance: ACETAMINOPHEN\HYDROCODONE BITARTRATE
     Indication: PROCEDURAL PAIN
     Dosage: 1 PILL ONLY GIVEN ON TIME
     Route: 048
     Dates: start: 20150122, end: 20150122
  6. LANTUS [Concomitant]
     Active Substance: INSULIN GLARGINE
  7. HYDRALAZINE [Concomitant]
     Active Substance: HYDRALAZINE HYDROCHLORIDE
  8. LOVASTATIN. [Concomitant]
     Active Substance: LOVASTATIN
  9. FAMOTIDINE. [Concomitant]
     Active Substance: FAMOTIDINE
  10. CILOSTAZOL. [Concomitant]
     Active Substance: CILOSTAZOL

REACTIONS (7)
  - Mental status changes [None]
  - Hallucination, visual [None]
  - Fall [None]
  - Thinking abnormal [None]
  - Confusional state [None]
  - Aggression [None]
  - Agitation [None]

NARRATIVE: CASE EVENT DATE: 20150122
